FAERS Safety Report 7637496-8 (Version None)
Quarter: 2011Q3

REPORT INFORMATION
  Report Type: 
  Country: None (occurrence: None)
  Receive Date: 20110726
  Receipt Date: 20110715
  Transmission Date: 20111222
  Serious: Yes (Hospitalization)
  Sender: FDA-Public Use
  Company Number: PHHY2011JP60844

PATIENT
  Age: 70 Year
  Sex: Female

DRUGS (1)
  1. VOLTAREN [Suspect]
     Dosage: 75 MG, DAILY

REACTIONS (10)
  - GASTROINTESTINAL AMYLOIDOSIS [None]
  - SMALL INTESTINAL STENOSIS [None]
  - HYPOPROTEINAEMIA [None]
  - GASTRIC MUCOSAL LESION [None]
  - C-REACTIVE PROTEIN INCREASED [None]
  - INTESTINAL DILATATION [None]
  - INTESTINAL OBSTRUCTION [None]
  - DIARRHOEA [None]
  - VOMITING [None]
  - GASTROINTESTINAL HYPOMOTILITY [None]
